FAERS Safety Report 7385979-0 (Version None)
Quarter: 2011Q1

REPORT INFORMATION
  Report Type: 
  Country: None (occurrence: None)
  Receive Date: 20110331
  Receipt Date: 20110322
  Transmission Date: 20110831
  Serious: Yes (Hospitalization)
  Sender: FDA-Public Use
  Company Number: AU-ASTRAZENECA-2011SE08613

PATIENT
  Age: 16610 Day
  Sex: Female
  Weight: 91 kg

DRUGS (5)
  1. SYMBICORT [Suspect]
     Indication: DYSPNOEA EXERTIONAL
     Dosage: 200/6, 2 PUFFS TWO TIMES A DAY
     Route: 055
     Dates: start: 20110209, end: 20110211
  2. VENTOLIN [Concomitant]
     Dosage: AS NECESSARY
     Route: 055
  3. SYMBICORT [Suspect]
     Indication: CHEST DISCOMFORT
     Dosage: 200/6, 2 PUFFS TWO TIMES A DAY
     Route: 055
     Dates: start: 20110209, end: 20110211
  4. VITAMIN D [Concomitant]
     Dosage: DAILY
     Route: 048
  5. CALTRATE [Concomitant]
     Dosage: DAILY
     Route: 048

REACTIONS (2)
  - MUSCULOSKELETAL STIFFNESS [None]
  - CHEST DISCOMFORT [None]
